FAERS Safety Report 16760197 (Version 3)
Quarter: 2019Q4

REPORT INFORMATION
  Report Type: Spontaneous
  Country: US (occurrence: US)
  Receive Date: 20190830
  Receipt Date: 20191114
  Transmission Date: 20200122
  Serious: No
  Sender: FDA-Public Use
  Company Number: US-PFIZER INC-2019371018

PATIENT
  Age: 48 Year
  Sex: Female
  Weight: 75.3 kg

DRUGS (1)
  1. PREMPHASE [Suspect]
     Active Substance: ESTROGENS, CONJUGATED\MEDROXYPROGESTERONE ACETATE
     Indication: MENOPAUSE
     Dosage: 20 MG, UNK
     Dates: start: 201906, end: 201909

REACTIONS (1)
  - Malaise [Unknown]
